FAERS Safety Report 15897030 (Version 1)
Quarter: 2019Q1

REPORT INFORMATION
  Report Type: Report from Study
  Country: US (occurrence: US)
  Receive Date: 20190131
  Receipt Date: 20190131
  Transmission Date: 20190417
  Serious: Yes (Death, Other)
  Sender: FDA-Public Use
  Company Number: US-PFIZER INC-2019039089

PATIENT
  Age: 65 Year
  Sex: Male

DRUGS (1)
  1. PENTOSTATIN. [Suspect]
     Active Substance: PENTOSTATIN
     Indication: HAIRY CELL LEUKAEMIA
     Dosage: 5 MG, DAILY FOR 2 DAYS EVERY 2 WEEK
     Route: 042

REACTIONS (5)
  - Mental status changes [Unknown]
  - Neurotoxicity [Fatal]
  - Respiratory arrest [Unknown]
  - Neoplasm progression [Unknown]
  - Renal failure [Fatal]
